FAERS Safety Report 16344414 (Version 2)
Quarter: 2020Q2

REPORT INFORMATION
  Report Type: Spontaneous
  Country: US (occurrence: US)
  Receive Date: 20190522
  Receipt Date: 20200407
  Transmission Date: 20200713
  Serious: Yes (Other)
  Sender: FDA-Public Use
  Company Number: US-GILEAD-2019-0408543

PATIENT
  Age: 61 Year
  Sex: Male

DRUGS (38)
  1. VIAGRA [Concomitant]
     Active Substance: SILDENAFIL CITRATE
  2. ATORVASTATIN CALCIUM. [Concomitant]
     Active Substance: ATORVASTATIN CALCIUM
  3. CARVEDILOL. [Concomitant]
     Active Substance: CARVEDILOL
  4. PREZISTA [Concomitant]
     Active Substance: DARUNAVIR ETHANOLATE
  5. TRUVADA [Suspect]
     Active Substance: EMTRICITABINE\TENOFOVIR DISOPROXIL FUMARATE
     Indication: HIV INFECTION
     Dosage: 1 DOSAGE FORM, QD
     Route: 048
     Dates: start: 200501, end: 201610
  6. CEFTRIAXONE. [Concomitant]
     Active Substance: CEFTRIAXONE
  7. ISENTRESS [Concomitant]
     Active Substance: RALTEGRAVIR POTASSIUM
  8. XANAX [Concomitant]
     Active Substance: ALPRAZOLAM
  9. ZITHROMAX [Concomitant]
     Active Substance: AZITHROMYCIN DIHYDRATE
  10. IBUPROFEN. [Concomitant]
     Active Substance: IBUPROFEN
  11. ALDACTONE [Concomitant]
     Active Substance: SPIRONOLACTONE
  12. LOTREL [Concomitant]
     Active Substance: AMLODIPINE BESYLATE\BENAZEPRIL HYDROCHLORIDE
  13. KALETRA [Concomitant]
     Active Substance: LOPINAVIR\RITONAVIR
  14. VIDEX [Concomitant]
     Active Substance: DIDANOSINE
  15. ZIAGEN [Concomitant]
     Active Substance: ABACAVIR SULFATE
  16. EPZICOM [Concomitant]
     Active Substance: ABACAVIR SULFATE\LAMIVUDINE
  17. LEVITRA [Concomitant]
     Active Substance: VARDENAFIL HYDROCHLORIDE
  18. NORVIR [Concomitant]
     Active Substance: RITONAVIR
  19. COMBIVIR [Concomitant]
     Active Substance: LAMIVUDINE\ZIDOVUDINE
  20. VICODIN [Concomitant]
     Active Substance: ACETAMINOPHEN\HYDROCODONE BITARTRATE
  21. EDURANT [Concomitant]
     Active Substance: RILPIVIRINE HYDROCHLORIDE
  22. FUROSEMIDE. [Concomitant]
     Active Substance: FUROSEMIDE
  23. PLAVIX [Concomitant]
     Active Substance: CLOPIDOGREL BISULFATE
  24. HYDROCODONE/ACETAMINOPHEN [Concomitant]
     Active Substance: ACETAMINOPHEN\HYDROCODONE
  25. MYCOSTATIN [Concomitant]
     Active Substance: NYSTATIN
  26. CRESTOR [Concomitant]
     Active Substance: ROSUVASTATIN CALCIUM
  27. CLOPIDOGREL BISULFATE. [Concomitant]
     Active Substance: CLOPIDOGREL BISULFATE
  28. ACYCLOVIR [ACICLOVIR] [Concomitant]
     Active Substance: ACYCLOVIR
  29. BIKTARVY [Concomitant]
     Active Substance: BICTEGRAVIR SODIUM\EMTRICITABINE\TENOFOVIR ALAFENAMIDE FUMARATE
  30. REYATAZ [Concomitant]
     Active Substance: ATAZANAVIR SULFATE
  31. TRIUMEQ [Concomitant]
     Active Substance: ABACAVIR SULFATE\DOLUTEGRAVIR SODIUM\LAMIVUDINE
  32. ASPIRIN EC [Concomitant]
     Active Substance: ASPIRIN
  33. RESTORIL [CHLORMEZANONE] [Concomitant]
     Active Substance: CHLORMEZANONE
  34. HYDRALAZINE [Concomitant]
     Active Substance: HYDRALAZINE HYDROCHLORIDE
  35. POTASSIUM [Concomitant]
     Active Substance: POTASSIUM
  36. ANDROGEL [Concomitant]
     Active Substance: TESTOSTERONE
  37. BACTRIM [Concomitant]
     Active Substance: SULFAMETHOXAZOLE\TRIMETHOPRIM
  38. AZITHROMYCIN ANHYDROUS. [Concomitant]
     Active Substance: AZITHROMYCIN ANHYDROUS

REACTIONS (10)
  - Tooth loss [Not Recovered/Not Resolved]
  - Bone density decreased [Not Recovered/Not Resolved]
  - Emotional distress [Unknown]
  - Anhedonia [Unknown]
  - Anxiety [Unknown]
  - Osteopenia [Not Recovered/Not Resolved]
  - Pain [Unknown]
  - Chronic kidney disease [Not Recovered/Not Resolved]
  - Economic problem [Unknown]
  - Renal failure [Not Recovered/Not Resolved]

NARRATIVE: CASE EVENT DATE: 201206
